FAERS Safety Report 24909855 (Version 1)
Quarter: 2025Q1

REPORT INFORMATION
  Report Type: Spontaneous
  Country: US (occurrence: None)
  Receive Date: 20250131
  Receipt Date: 20250131
  Transmission Date: 20250409
  Serious: No
  Sender: FDA-CTU
  Company Number: None

PATIENT
  Age: 69 Year
  Sex: Female
  Weight: 106.3 kg

DRUGS (7)
  1. CYCLOPHOSPHAMIDE [Suspect]
     Active Substance: CYCLOPHOSPHAMIDE
  2. CYTARABINE [Suspect]
     Active Substance: CYTARABINE
  3. SPRYCEL [Suspect]
     Active Substance: DASATINIB
  4. DEXAMETHASONE [Suspect]
     Active Substance: DEXAMETHASONE
  5. DOXORUBICIN HYDROCHLORIDE [Concomitant]
     Active Substance: DOXORUBICIN HYDROCHLORIDE
  6. METHOTREXATE [Suspect]
     Active Substance: METHOTREXATE
  7. VINCRISTINE SULFATE [Suspect]
     Active Substance: VINCRISTINE SULFATE

REACTIONS (6)
  - Tachycardia [None]
  - Hypotension [None]
  - Troponin increased [None]
  - Sinus tachycardia [None]
  - Hypokalaemia [None]
  - Anaemia [None]

NARRATIVE: CASE EVENT DATE: 20250111
